FAERS Safety Report 19132199 (Version 1)
Quarter: 2021Q2

REPORT INFORMATION
  Report Type: Spontaneous
  Country: GB (occurrence: GB)
  Receive Date: 20210413
  Receipt Date: 20210413
  Transmission Date: 20210717
  Serious: Yes (Other)
  Sender: FDA-Public Use
  Company Number: GB-TEVA-2021-GB-1896970

PATIENT
  Age: 75 Year
  Sex: Female

DRUGS (2)
  1. LEVOTHYROXINE. [Concomitant]
     Active Substance: LEVOTHYROXINE
  2. FAMOTIDINE. [Suspect]
     Active Substance: FAMOTIDINE
     Indication: CARDIAC ASSISTANCE DEVICE USER
     Dosage: 1 DOSAGE FORMS DAILY; 1 TABLET PER DAY, FOR EIGHT MONTHS

REACTIONS (6)
  - Fatigue [Unknown]
  - Pain [Unknown]
  - Coeliac disease [Not Recovered/Not Resolved]
  - Asthenia [Unknown]
  - Gastrooesophageal reflux disease [Unknown]
  - Off label use [Unknown]
